FAERS Safety Report 7081566-2 (Version None)
Quarter: 2010Q4

REPORT INFORMATION
  Report Type: 
  Country: None (occurrence: None)
  Receive Date: 20101103
  Receipt Date: 20101025
  Transmission Date: 20110411
  Serious: Yes (Other)
  Sender: FDA-Public Use
  Company Number: US-ASTRAZENECA-2010SE50471

PATIENT
  Age: 49 Year
  Sex: Male
  Weight: 83.9 kg

DRUGS (4)
  1. SEROQUEL [Suspect]
     Dosage: ONCE A DAY
     Route: 048
  2. XANAX [Suspect]
     Indication: DEPRESSION
     Route: 048
     Dates: start: 20080101
  3. XANAX [Suspect]
     Indication: ANXIETY
     Route: 048
     Dates: start: 20080101
  4. CYMBALTA [Suspect]
     Route: 065

REACTIONS (8)
  - DRUG DEPENDENCE [None]
  - DRUG INTOLERANCE [None]
  - EJACULATION FAILURE [None]
  - FEELING ABNORMAL [None]
  - FRUSTRATION [None]
  - LIBIDO DECREASED [None]
  - MOOD ALTERED [None]
  - NERVOUSNESS [None]
